FAERS Safety Report 5782368-7 (Version None)
Quarter: 2008Q2

REPORT INFORMATION
  Report Type: 
  Country: None (occurrence: None)
  Receive Date: 20080623
  Receipt Date: 20080611
  Transmission Date: 20081010
  Serious: Yes (Other)
  Sender: FDA-Public Use
  Company Number: DE-PFIZER INC-2008038928

PATIENT
  Sex: Male
  Weight: 91 kg

DRUGS (2)
  1. LYRICA [Suspect]
     Indication: RESTLESS LEGS SYNDROME
     Route: 048
     Dates: start: 20080201, end: 20080301
  2. OPIPRAMOL [Concomitant]
     Route: 048
     Dates: start: 20070919, end: 20070928

REACTIONS (1)
  - TRANSAMINASES INCREASED [None]
